FAERS Safety Report 14413774 (Version 1)
Quarter: 2018Q1

REPORT INFORMATION
  Report Type: Spontaneous
  Country: US (occurrence: US)
  Receive Date: 20180117
  Receipt Date: 20180117
  Transmission Date: 20180509
  Serious: No
  Sender: FDA-Public Use
  Company Number: None

PATIENT
  Sex: Female
  Weight: 88.9 kg

DRUGS (1)
  1. FORTEO [Suspect]
     Active Substance: TERIPARATIDE
     Indication: SENILE OSTEOPOROSIS
     Dosage: 20MCG QD SUBQ?INTERRUPTED
     Route: 058
     Dates: start: 201708

REACTIONS (4)
  - Blood urine present [None]
  - Gallbladder disorder [None]
  - Urinary tract infection [None]
  - Influenza [None]
